FAERS Safety Report 4749385-7 (Version None)
Quarter: 2005Q3

REPORT INFORMATION
  Report Type: 
  Country: None (occurrence: None)
  Receive Date: 20050819
  Receipt Date: 20050117
  Transmission Date: 20060218
  Serious: Yes (Hospitalization)
  Sender: FDA-Public Use
  Company Number: US-MERCK-0501USA02307

PATIENT
  Age: 51 Year
  Sex: Female
  Weight: 70 kg

DRUGS (15)
  1. VIOXX [Suspect]
     Indication: RHEUMATOID ARTHRITIS
     Route: 048
     Dates: start: 20020101, end: 20020801
  2. VIOXX [Suspect]
     Route: 048
     Dates: start: 20020910, end: 20021118
  3. VIOXX [Suspect]
     Route: 048
     Dates: start: 20021118, end: 20030407
  4. VIOXX [Suspect]
     Route: 048
     Dates: start: 20030407, end: 20030806
  5. VIOXX [Suspect]
     Route: 048
     Dates: start: 20030806, end: 20040119
  6. VIOXX [Suspect]
     Route: 048
     Dates: start: 20040119, end: 20040909
  7. VIOXX [Suspect]
     Route: 048
     Dates: start: 20040909, end: 20041005
  8. CELEXA [Concomitant]
     Route: 065
  9. PREMARIN [Concomitant]
     Route: 065
  10. PLAQUENIL [Suspect]
     Indication: RHEUMATOID ARTHRITIS
     Route: 065
  11. METHOTREXATE [Suspect]
     Route: 065
  12. KLONOPIN [Concomitant]
     Route: 065
  13. FOLIC ACID [Concomitant]
     Route: 065
  14. VICODIN [Concomitant]
     Route: 065
  15. LASIX [Concomitant]
     Route: 065

REACTIONS (19)
  - ARTHRALGIA [None]
  - ASTHMA [None]
  - BREAST MASS [None]
  - BRONCHITIS [None]
  - BURSITIS [None]
  - DEPRESSION [None]
  - EPICONDYLITIS [None]
  - FIBROMYALGIA [None]
  - HYPERTENSION [None]
  - INTERVERTEBRAL DISC DISORDER [None]
  - LYMPHADENOPATHY [None]
  - MENOPAUSAL SYMPTOMS [None]
  - MUMPS [None]
  - OEDEMA PERIPHERAL [None]
  - RASH [None]
  - RESPIRATORY DISTRESS [None]
  - ROTATOR CUFF SYNDROME [None]
  - SINUSITIS [None]
  - SWELLING FACE [None]
